FAERS Safety Report 10419308 (Version 1)
Quarter: 2014Q3

REPORT INFORMATION
  Report Type: Spontaneous
  Country: GB (occurrence: None)
  Receive Date: 20140827
  Receipt Date: 20140827
  Transmission Date: 20150326
  Serious: Yes (Life-Threatening, Hospitalization, Other)
  Sender: FDA-Public Use
  Company Number: AUR-APL-2014-08827

PATIENT
  Age: 62 Year
  Sex: Male

DRUGS (14)
  1. METFORMIN (METFORMIN) UNKNOWN, UNKNOWN [Suspect]
     Active Substance: METFORMIN HYDROCHLORIDE
     Indication: TYPE 2 DIABETES MELLITUS
     Dosage: 1 G, 3 TIMES A DAY, ORAL
     Route: 048
     Dates: end: 20140501
  2. SPIRONOLACTONE (SPIRONOLACTONE) [Suspect]
     Active Substance: SPIRONOLACTONE
     Indication: LEFT VENTRICULAR DYSFUNCTION
     Dosage: 50 MG, ONCE A DAY, ORAL
     Route: 048
     Dates: end: 20140501
  3. ASPIRIN (ACETYLSALICYLIC ACID) [Concomitant]
     Active Substance: ASPIRIN
  4. FOLIC ACID (FOLIC ACID) [Concomitant]
     Active Substance: FOLIC ACID
  5. LISINOPRIL. [Suspect]
     Active Substance: LISINOPRIL
     Indication: LEFT VENTRICULAR DYSFUNCTION
     Dosage: 20 MG, ONCE A DAY, ORAL
     Route: 048
     Dates: end: 20140501
  6. SERETIDE [Concomitant]
     Active Substance: FLUTICASONE FUROATE\SALMETEROL XINAFOATE
  7. SALBUTAMOL (SALBUTAMOL) [Concomitant]
     Active Substance: ALBUTEROL
  8. FUROSEMIDE (FUROSEMIDE) [Suspect]
     Active Substance: FUROSEMIDE
     Indication: LEFT VENTRICULAR DYSFUNCTION
     Dosage: 100 MG, TWO TIMES A DAY, ORAL
     Route: 048
     Dates: end: 20140501
  9. SPIRONOLACTONE (SPIRONOLACTONE) [Suspect]
     Active Substance: SPIRONOLACTONE
     Indication: LEFT VENTRICULAR HYPERTROPHY
     Dosage: 50 MG, ONCE A DAY, ORAL
     Route: 048
     Dates: end: 20140501
  10. CITALOPRAM (CITALOPRAM) [Concomitant]
     Active Substance: CITALOPRAM HYDROBROMIDE
  11. SIMVASTATIN (SIMVASTATIN) [Concomitant]
     Active Substance: SIMVASTATIN
  12. LISINOPRIL. [Suspect]
     Active Substance: LISINOPRIL
     Indication: LEFT VENTRICULAR HYPERTROPHY
     Dosage: 20 MG, ONCE A DAY, ORAL
     Route: 048
     Dates: end: 20140501
  13. AMLODIPINE [Concomitant]
     Active Substance: AMLODIPINE BESYLATE
  14. TIOTROPIUM BROMIDE (TIOTROPIUM BROMIDE) [Concomitant]
     Active Substance: TIOTROPIUM BROMIDE

REACTIONS (5)
  - Rectal haemorrhage [None]
  - Diarrhoea [None]
  - Nephropathy toxic [None]
  - Renal failure acute [None]
  - Fall [None]

NARRATIVE: CASE EVENT DATE: 20140501
